FAERS Safety Report 12211917 (Version 1)
Quarter: 2016Q1

REPORT INFORMATION
  Report Type: Spontaneous
  Country: JP (occurrence: JP)
  Receive Date: 20160325
  Receipt Date: 20160325
  Transmission Date: 20160526
  Serious: Yes (Death, Life-Threatening)
  Sender: FDA-Public Use
  Company Number: JP-ASTRAZENECA-2002AP03742

PATIENT
  Age: 21889 Day
  Sex: Male
  Weight: 24 kg

DRUGS (21)
  1. IRESSA [Suspect]
     Active Substance: GEFITINIB
     Indication: NON-SMALL CELL LUNG CANCER
     Route: 048
     Dates: start: 20020830, end: 20021018
  2. CISPLATIN. [Suspect]
     Active Substance: CISPLATIN
     Indication: LUNG ADENOCARCINOMA
     Route: 065
  3. CARBOPLATIN. [Concomitant]
     Active Substance: CARBOPLATIN
     Dosage: 2 COURSE
     Dates: start: 20011012
  4. MUCOSOLVAN [Concomitant]
     Active Substance: AMBROXOL HYDROCHLORIDE
     Indication: SPUTUM RETENTION
     Route: 048
  5. PACLITAXEL. [Concomitant]
     Active Substance: PACLITAXEL
     Dosage: TWO COURSES
     Dates: end: 20000825
  6. GEMCITABINE [Concomitant]
     Active Substance: GEMCITABINE\GEMCITABINE HYDROCHLORIDE
     Dosage: 1 COURSE
     Dates: start: 20010809, end: 20010906
  7. ULCERLMIN [Concomitant]
     Active Substance: SUCRALFATE
     Indication: GASTRITIS
     Route: 048
     Dates: start: 20020723
  8. DEPAS [Concomitant]
     Active Substance: ETIZOLAM
     Indication: INSOMNIA
     Route: 048
     Dates: start: 20021004
  9. GASTER [Concomitant]
     Active Substance: FAMOTIDINE
     Indication: GASTRITIS
     Route: 048
     Dates: start: 20001003
  10. PACLITAXEL. [Concomitant]
     Active Substance: PACLITAXEL
     Dosage: 2 COURSES
     Dates: start: 20020426, end: 20020523
  11. VINDESINE [Concomitant]
     Active Substance: VINDESINE
     Dosage: TWO COURSES
     Dates: start: 19990402, end: 19990507
  12. PACLITAXEL. [Concomitant]
     Active Substance: PACLITAXEL
     Dosage: 1 COURSE
     Dates: start: 20010713
  13. CARBOPLATIN. [Concomitant]
     Active Substance: CARBOPLATIN
     Dosage: 1 COURSE
     Dates: start: 20010713
  14. CARBOPLATIN. [Concomitant]
     Active Substance: CARBOPLATIN
     Dosage: 2 COURSE
     Dates: start: 20020426, end: 20020523
  15. GEMZAR [Suspect]
     Active Substance: GEMCITABINE HYDROCHLORIDE
     Indication: LUNG ADENOCARCINOMA
     Route: 065
  16. VINORELBINE [Concomitant]
     Active Substance: VINORELBINE\VINORELBINE TARTRATE
     Dosage: 1 COURSE
     Dates: start: 20010809, end: 20010906
  17. LOXONIN [Concomitant]
     Active Substance: LOXOPROFEN SODIUM
     Indication: METASTASES TO LYMPH NODES
     Route: 048
     Dates: start: 20020418
  18. CARBOPLATIN. [Concomitant]
     Active Substance: CARBOPLATIN
     Dosage: TWO COURSES
     Dates: end: 20000825
  19. PACLITAXEL. [Concomitant]
     Active Substance: PACLITAXEL
     Dosage: 2 COURSES
     Dates: start: 20011012
  20. PACLITAXEL. [Concomitant]
     Active Substance: PACLITAXEL
     Dosage: 2 COURSES
     Dates: start: 20020709, end: 20020813
  21. UFT [Concomitant]
     Active Substance: TEGAFUR\URACIL
     Route: 048
     Dates: start: 20001003, end: 20010702

REACTIONS (2)
  - Sepsis [Fatal]
  - Interstitial lung disease [Fatal]

NARRATIVE: CASE EVENT DATE: 20010919
